FAERS Safety Report 10169169 (Version 1)
Quarter: 2014Q2

REPORT INFORMATION
  Report Type: Spontaneous
  Country: CN (occurrence: CN)
  Receive Date: 20140513
  Receipt Date: 20140513
  Transmission Date: 20141212
  Serious: Yes (Hospitalization)
  Sender: FDA-Public Use
  Company Number: CN-BAYER-2014-067970

PATIENT
  Age: 53 Year
  Sex: Male

DRUGS (1)
  1. BAYASPIRIN [Suspect]
     Dosage: 100 MG, QD
     Route: 048
     Dates: start: 20130530, end: 20130531

REACTIONS (1)
  - Glucose-6-phosphate dehydrogenase deficiency [Recovering/Resolving]
